FAERS Safety Report 7913079-7 (Version None)
Quarter: 2011Q4

REPORT INFORMATION
  Report Type: 
  Country: None (occurrence: None)
  Receive Date: 20111114
  Receipt Date: 20111031
  Transmission Date: 20120403
  Serious: Yes (Other)
  Sender: FDA-Public Use
  Company Number: US-ENDO PHARMACEUTICALS INC.-PROP20110124

PATIENT
  Sex: Male

DRUGS (2)
  1. PROPOXYPHENE NAPSYLATE W/ ACETAMINOPHEN [Suspect]
     Route: 048
  2. PROPOXYPHENE NAPSYLATE W/ ACETAMINOPHEN [Suspect]
     Indication: PAIN MANAGEMENT
     Dosage: UNKNOWN
     Route: 048

REACTIONS (3)
  - ARRHYTHMIA [None]
  - CARDIOVASCULAR DISORDER [None]
  - CEREBROVASCULAR ACCIDENT [None]
